FAERS Safety Report 26182853 (Version 1)
Quarter: 2025Q4

REPORT INFORMATION
  Report Type: Spontaneous
  Country: US (occurrence: US)
  Receive Date: 20251221
  Receipt Date: 20251221
  Transmission Date: 20260118
  Serious: No
  Sender: DR REDDYS
  Company Number: US-DRL-USA-USA/2025/12/018353

PATIENT
  Age: 71 Year
  Sex: Female
  Weight: 41.28 kg

DRUGS (1)
  1. FLUOROURACIL [Suspect]
     Active Substance: FLUOROURACIL
     Indication: Product used for unknown indication
     Dosage: SERIAL-084TAA9U2875?APPLYING IT ONCE OR TWICE DAILY.
     Dates: start: 20251112, end: 20251119

REACTIONS (2)
  - Erythema [Not Recovered/Not Resolved]
  - Rash macular [Not Recovered/Not Resolved]
